FAERS Safety Report 5786338-4 (Version None)
Quarter: 2008Q2

REPORT INFORMATION
  Report Type: 
  Country: None (occurrence: None)
  Receive Date: 20080624
  Receipt Date: 20080612
  Transmission Date: 20081010
  Serious: Yes (Life-Threatening, Other)
  Sender: FDA-Public Use
  Company Number: GR-PFIZER INC-2008049690

PATIENT
  Age: 68 Year
  Sex: Female

DRUGS (2)
  1. SILDENAFIL CITRATE [Suspect]
     Indication: PULMONARY HYPERTENSION
     Dosage: TEXT:1 DOSAGE FORM
     Route: 048
     Dates: start: 20080214, end: 20080328
  2. SINTROM [Suspect]
     Indication: PULMONARY HYPERTENSION
     Dosage: TEXT:1 DOSAGE FORM
     Route: 048
     Dates: start: 20080221, end: 20080222

REACTIONS (1)
  - INTERNATIONAL NORMALISED RATIO INCREASED [None]
